FAERS Safety Report 13365545 (Version 1)
Quarter: 2017Q1

REPORT INFORMATION
  Report Type: Spontaneous
  Country: US (occurrence: US)
  Receive Date: 20170323
  Receipt Date: 20170323
  Transmission Date: 20170429
  Serious: No
  Sender: FDA-Public Use
  Company Number: US-WARNER CHILCOTT-2016-000814

PATIENT
  Age: 74 Year
  Sex: Female

DRUGS (13)
  1. MECLIZINE [Concomitant]
     Active Substance: MECLIZINE HYDROCHLORIDE
     Dosage: UNK UNK, UNKNOWN
     Route: 065
  2. ZOFRAN [Concomitant]
     Active Substance: ONDANSETRON HYDROCHLORIDE
     Indication: EATING DISORDER
     Dosage: UNK UNK, QD
     Route: 048
  3. OXYBUTIN [Concomitant]
     Active Substance: OXYBUTYNIN
     Dosage: UNK UNK, UNKNOWN
     Route: 065
  4. POTASSIUM                          /00031402/ [Concomitant]
     Active Substance: POTASSIUM
     Indication: RENAL DISORDER
     Dosage: UNK UNK, UNKNOWN
     Route: 065
  5. CARAFATE [Concomitant]
     Active Substance: SUCRALFATE
     Dosage: UNK UNK, UNKNOWN
     Route: 065
  6. MAGNESIUM [Concomitant]
     Active Substance: MAGNESIUM
     Dosage: UNK UNK, UNKNOWN
     Route: 065
  7. INDERAL LA [Concomitant]
     Active Substance: PROPRANOLOL HYDROCHLORIDE
     Dosage: UNK UNK, UNKNOWN
     Route: 065
  8. PRAZOSIN [Concomitant]
     Active Substance: PRAZOSIN
     Dosage: UNK UNK, UNKNOWN
     Route: 065
  9. HYDROCORTISONE. [Concomitant]
     Active Substance: HYDROCORTISONE
     Dosage: UNK UNK, UNKNOWN
     Route: 065
  10. LORAZEPAM. [Concomitant]
     Active Substance: LORAZEPAM
     Dosage: UNK UNK, UNKNOWN
     Route: 065
  11. ESTRACE [Suspect]
     Active Substance: ESTRADIOL
     Indication: VAGINAL INFECTION
     Dosage: ONCE AT BEDTIME
     Route: 067
     Dates: start: 20160324, end: 20160324
  12. VITAMIN D [Concomitant]
     Active Substance: CHOLECALCIFEROL
     Dosage: UNK UNK, UNKNOWN
     Route: 065
  13. PRILOSEC [Concomitant]
     Active Substance: OMEPRAZOLE MAGNESIUM
     Dosage: UNK UNK, UNKNOWN
     Route: 065

REACTIONS (1)
  - Vulvovaginal burning sensation [Recovering/Resolving]

NARRATIVE: CASE EVENT DATE: 20160324
